FAERS Safety Report 15722990 (Version 4)
Quarter: 2019Q2

REPORT INFORMATION
  Report Type: Spontaneous
  Country: US (occurrence: US)
  Receive Date: 20181214
  Receipt Date: 20190409
  Transmission Date: 20190711
  Serious: Yes (Hospitalization, Other)
  Sender: FDA-Public Use
  Company Number: US-SAOL THERAPEUTICS-2018SAO01120

PATIENT
  Age: 15 Year
  Sex: Male

DRUGS (2)
  1. LIORESAL [Suspect]
     Active Substance: BACLOFEN
     Indication: MUSCLE SPASTICITY
     Dosage: 351.4 ?G, \DAY
     Route: 037
     Dates: end: 2018
  2. LIORESAL [Suspect]
     Active Substance: BACLOFEN
     Dosage: 420 ?G, \DAY
     Route: 037
     Dates: start: 2018

REACTIONS (11)
  - Spinal fusion surgery [Recovered/Resolved]
  - Pain [Recovered/Resolved]
  - Hypotension [Recovered/Resolved]
  - Drug withdrawal syndrome [Recovered/Resolved]
  - Device kink [Unknown]
  - Bradycardia [Recovered/Resolved]
  - Pyrexia [Recovered/Resolved]
  - Tachycardia [Recovered/Resolved]
  - Device damage [Recovered/Resolved]
  - Muscle tightness [Recovered/Resolved]
  - CSF test abnormal [Unknown]

NARRATIVE: CASE EVENT DATE: 2018
